FAERS Safety Report 13762887 (Version 6)
Quarter: 2018Q3

REPORT INFORMATION
  Report Type: Report from Study
  Country: None (occurrence: TR)
  Receive Date: 20170718
  Receipt Date: 20180925
  Transmission Date: 20181010
  Serious: Yes (Other)
  Sender: FDA-Public Use
  Company Number: TR-ABBVIE-17P-161-2034719-00

PATIENT
  Age: 78 Year
  Sex: Male
  Weight: 90 kg

DRUGS (11)
  1. DUODOPA [Suspect]
     Active Substance: CARBIDOPA\LEVODOPA
     Dosage: MD: 10 ML CD: 3.5 ML ED: 2.5 ML
     Route: 050
     Dates: start: 20171207, end: 20180920
  2. MADOPAR HBS [Concomitant]
     Active Substance: BENSERAZIDE HYDROCHLORIDE\LEVODOPA
     Indication: PARKINSON^S DISEASE
     Dosage: 1X2
     Route: 048
  3. SEROQUEL [Concomitant]
     Active Substance: QUETIAPINE FUMARATE
     Indication: PARKINSON^S DISEASE
     Route: 048
  4. LUSTRAL [Concomitant]
     Active Substance: SERTRALINE HYDROCHLORIDE
     Indication: PARKINSON^S DISEASE
     Route: 048
  5. SEROQUEL XR [Concomitant]
     Active Substance: QUETIAPINE FUMARATE
     Indication: PARKINSON^S DISEASE
     Route: 048
  6. DUODOPA [Suspect]
     Active Substance: CARBIDOPA\LEVODOPA
     Dosage: MD: 10.0 ML CD: 3.6 ML ED: 2.5 ML
     Route: 050
     Dates: start: 20180920
  7. EXELON PATCH [Concomitant]
     Active Substance: RIVASTIGMINE
     Indication: DEMENTIA
     Route: 062
  8. XALFU XL [Concomitant]
     Indication: BENIGN PROSTATIC HYPERPLASIA
     Route: 048
  9. DUODOPA [Suspect]
     Active Substance: CARBIDOPA\LEVODOPA
     Indication: PARKINSON^S DISEASE
     Dosage: MD: 10.0 ML, CD: 2.9 ML ED: 2.5 ML
     Route: 050
     Dates: start: 20161229
  10. DUODOPA [Suspect]
     Active Substance: CARBIDOPA\LEVODOPA
     Dosage: MD: 10 ML CD: 2.9 ML ED: 2.5 ML
     Route: 050
     Dates: end: 20171207
  11. AVODART [Concomitant]
     Active Substance: DUTASTERIDE
     Indication: BENIGN PROSTATIC HYPERPLASIA
     Route: 048

REACTIONS (11)
  - Pulmonary oedema [Recovered/Resolved]
  - Somnolence [Recovered/Resolved]
  - Dizziness [Recovered/Resolved]
  - Bradykinesia [Not Recovered/Not Resolved]
  - Gait disturbance [Recovered/Resolved]
  - Somnolence [Not Recovered/Not Resolved]
  - Fall [Recovered/Resolved]
  - Hypotension [Recovered/Resolved]
  - Neuropathy peripheral [Not Recovered/Not Resolved]
  - Gait disturbance [Not Recovered/Not Resolved]
  - Stoma site hypergranulation [Not Recovered/Not Resolved]

NARRATIVE: CASE EVENT DATE: 201701
